FAERS Safety Report 16160418 (Version 2)
Quarter: 2019Q2

REPORT INFORMATION
  Report Type: Report from Study
  Country: TW (occurrence: TW)
  Receive Date: 20190404
  Receipt Date: 20190416
  Transmission Date: 20190711
  Serious: Yes (Death, Hospitalization, Other)
  Sender: FDA-Public Use
  Company Number: TW-BRISTOL-MYERS SQUIBB COMPANY-BMS-2019-025397

PATIENT
  Age: 70 Year
  Sex: Male
  Weight: 55 kg

DRUGS (10)
  1. BFLUID [Concomitant]
     Active Substance: AMINO ACIDS\DEXTROSE\ELECTROLYTES NOS\VITAMINS
     Indication: ADVERSE EVENT
     Dosage: 1000 MILLIGRAM
     Route: 042
     Dates: start: 20190307
  2. LANSOPRAZOLE. [Concomitant]
     Active Substance: LANSOPRAZOLE
     Indication: PRODUCT USED FOR UNKNOWN INDICATION
     Dosage: 30 MILLIGRAM
     Route: 048
     Dates: start: 20181127
  3. NIVOLUMAB [Suspect]
     Active Substance: NIVOLUMAB
     Indication: PRODUCT USED FOR UNKNOWN INDICATION
     Dosage: 160.5 MILLIGRAM
     Route: 065
     Dates: start: 20190308, end: 20190308
  4. ETORICOXIB. [Concomitant]
     Active Substance: ETORICOXIB
     Indication: ADVERSE EVENT
     Dosage: 60 MILLIGRAM
     Route: 048
     Dates: start: 20190208
  5. IPILIMUMAB [Suspect]
     Active Substance: IPILIMUMAB
     Indication: OESOPHAGEAL SQUAMOUS CELL CARCINOMA
     Dosage: 53.5 MILLIGRAM
     Route: 065
     Dates: start: 20181113, end: 20181113
  6. TRICHLORMETHIAZIDE [Concomitant]
     Active Substance: TRICHLORMETHIAZIDE
     Indication: ADVERSE EVENT
     Dosage: 2 MILLIGRAM
     Route: 048
     Dates: start: 20190225
  7. NIVOLUMAB [Suspect]
     Active Substance: NIVOLUMAB
     Indication: OESOPHAGEAL SQUAMOUS CELL CARCINOMA
     Dosage: 160.5 MILLIGRAM
     Route: 065
     Dates: start: 20181113, end: 20181113
  8. IPILIMUMAB [Suspect]
     Active Substance: IPILIMUMAB
     Indication: PRODUCT USED FOR UNKNOWN INDICATION
     Dosage: 53.5 MILLIGRAM
     Route: 065
     Dates: start: 20190208, end: 20190208
  9. ACETYLCYSTEINE. [Concomitant]
     Active Substance: ACETYLCYSTEINE
     Indication: ADVERSE EVENT
     Dosage: 400 MILLIGRAM
     Route: 048
     Dates: start: 20181225
  10. TAITA NO.5 [Concomitant]
     Indication: ADVERSE EVENT
     Dosage: 500 ABSENT
     Route: 042
     Dates: start: 20181225

REACTIONS (2)
  - Dysphagia [Unknown]
  - Malignant neoplasm progression [Fatal]

NARRATIVE: CASE EVENT DATE: 20190312
